FAERS Safety Report 14650176 (Version 3)
Quarter: 2018Q2

REPORT INFORMATION
  Report Type: Report from Study
  Country: GB (occurrence: GB)
  Receive Date: 20180316
  Receipt Date: 20180502
  Transmission Date: 20180711
  Serious: Yes (Other)
  Sender: FDA-Public Use
  Company Number: GB-JNJFOC-20180320560

PATIENT
  Sex: Male

DRUGS (1)
  1. STELARA [Suspect]
     Active Substance: USTEKINUMAB
     Indication: PSORIATIC ARTHROPATHY
     Route: 058
     Dates: start: 2017

REACTIONS (3)
  - Therapeutic response decreased [Unknown]
  - Lower respiratory tract infection [Recovered/Resolved]
  - Psoriatic arthropathy [Not Recovered/Not Resolved]
